FAERS Safety Report 6326515-7 (Version None)
Quarter: 2009Q3

REPORT INFORMATION
  Report Type: 
  Country: None (occurrence: None)
  Receive Date: 20090821
  Receipt Date: 20090805
  Transmission Date: 20100115
  Serious: Yes (Other)
  Sender: FDA-Public Use
  Company Number: JPI-P-008288

PATIENT
  Age: 21 Year
  Sex: Male

DRUGS (12)
  1. XYREM [Suspect]
     Indication: HALLUCINATION
     Dosage: SEE IMAGE
     Route: 048
     Dates: start: 20090301, end: 20090401
  2. XYREM [Suspect]
     Indication: NARCOLEPSY
     Dosage: SEE IMAGE
     Route: 048
     Dates: start: 20090301, end: 20090401
  3. XYREM [Suspect]
     Indication: POOR QUALITY SLEEP
     Dosage: SEE IMAGE
     Route: 048
     Dates: start: 20090301, end: 20090401
  4. XYREM [Suspect]
     Indication: HALLUCINATION
     Dosage: SEE IMAGE
     Route: 048
     Dates: end: 20090701
  5. XYREM [Suspect]
     Indication: NARCOLEPSY
     Dosage: SEE IMAGE
     Route: 048
     Dates: end: 20090701
  6. XYREM [Suspect]
     Indication: POOR QUALITY SLEEP
     Dosage: SEE IMAGE
     Route: 048
     Dates: end: 20090701
  7. XYREM [Suspect]
     Indication: HALLUCINATION
     Dosage: SEE IMAGE
     Route: 048
     Dates: start: 20090401
  8. XYREM [Suspect]
     Indication: NARCOLEPSY
     Dosage: SEE IMAGE
     Route: 048
     Dates: start: 20090401
  9. XYREM [Suspect]
     Indication: POOR QUALITY SLEEP
     Dosage: SEE IMAGE
     Route: 048
     Dates: start: 20090401
  10. XYREM [Suspect]
     Indication: HALLUCINATION
     Dosage: SEE IMAGE
     Route: 048
     Dates: start: 20090701
  11. XYREM [Suspect]
     Indication: NARCOLEPSY
     Dosage: SEE IMAGE
     Route: 048
     Dates: start: 20090701
  12. XYREM [Suspect]
     Indication: POOR QUALITY SLEEP
     Dosage: SEE IMAGE
     Route: 048
     Dates: start: 20090701

REACTIONS (3)
  - DEPRESSED MOOD [None]
  - DISSOCIATION [None]
  - PSYCHIATRIC SYMPTOM [None]
